FAERS Safety Report 8667619 (Version 2)
Quarter: 2013Q4

REPORT INFORMATION
  Report Type: Spontaneous
  Country: GB (occurrence: GB)
  Receive Date: 20120717
  Receipt Date: 20131105
  Transmission Date: 20140711
  Serious: Yes (Life-Threatening, Hospitalization)
  Sender: FDA-Public Use
  Company Number: GB-009507513-1207GBR004101

PATIENT
  Age: 86 Year
  Sex: Female

DRUGS (3)
  1. PRINIVIL [Suspect]
     Indication: HYPERTENSION
     Route: 048
  2. LEVOTHYROXINE SODIUM [Concomitant]
  3. AMLODIPINE [Concomitant]

REACTIONS (3)
  - Stridor [Unknown]
  - Swollen tongue [Unknown]
  - Dysphagia [Unknown]
